FAERS Safety Report 7213102-1 (Version None)
Quarter: 2011Q1

REPORT INFORMATION
  Report Type: 
  Country: None (occurrence: None)
  Receive Date: 20110106
  Receipt Date: 20101227
  Transmission Date: 20110831
  Serious: Yes (Hospitalization)
  Sender: FDA-Public Use
  Company Number: US-ELI_LILLY_AND_COMPANY-US201101000351

PATIENT
  Age: 63 Year
  Sex: Female
  Weight: 60.6 kg

DRUGS (9)
  1. ZANTAC [Concomitant]
  2. OTHER PHARMA COMPANY INV DRUG [Suspect]
     Indication: LUNG ADENOCARCINOMA METASTATIC
     Dosage: 10 MG, WEEKLY (1/W)
     Route: 042
     Dates: start: 20100823, end: 20101108
  3. PERCOCET [Concomitant]
     Dates: start: 20100201
  4. WARFARIN SODIUM [Concomitant]
     Dates: start: 20100401
  5. PEMETREXED [Suspect]
     Indication: LUNG ADENOCARCINOMA METASTATIC
     Dosage: 443 MG, EVERY THREE WEEKS
     Route: 042
     Dates: start: 20100823, end: 20101025
  6. NEURONTIN [Concomitant]
     Dates: start: 20100101
  7. MS CONTIN [Concomitant]
     Dates: start: 20100201
  8. CELEXA [Concomitant]
  9. MAGNESIUM OXIDE [Concomitant]
     Dates: start: 20100501

REACTIONS (2)
  - PNEUMONIA [None]
  - PULMONARY EMBOLISM [None]
